FAERS Safety Report 23551868 (Version 1)
Quarter: 2024Q1

REPORT INFORMATION
  Report Type: Spontaneous
  Country: US (occurrence: US)
  Receive Date: 20240222
  Receipt Date: 20240222
  Transmission Date: 20240410
  Serious: Yes (Hospitalization)
  Sender: FDA-Public Use
  Company Number: US-STRIDES ARCOLAB LIMITED-2023SP001285

PATIENT
  Age: 42 Year
  Sex: Female

DRUGS (8)
  1. ETOPOSIDE [Suspect]
     Active Substance: ETOPOSIDE
     Indication: Hepatosplenic T-cell lymphoma
     Dosage: UNK, CYCLICAL (6 CYCLES; DA-EPOCH REGIMEN AT DOSE LEVEL +1) (DA-EPOCH REGIMEN)
     Route: 065
  2. DOXORUBICIN [Suspect]
     Active Substance: DOXORUBICIN
     Indication: Hepatosplenic T-cell lymphoma
     Dosage: UNK, CYCLICAL (6 CYCLES; DA-EPOCH REGIMEN AT DOSE LEVEL +1)
     Route: 065
  3. PREDNISOLONE [Suspect]
     Active Substance: PREDNISOLONE
     Indication: Hepatosplenic T-cell lymphoma
     Dosage: UNK, CYCLICAL (6 CYCLES; DA-EPOCH REGIMEN AT DOSE LEVEL +1  )
     Route: 065
  4. CYCLOPHOSPHAMIDE [Suspect]
     Active Substance: CYCLOPHOSPHAMIDE
     Indication: Hepatosplenic T-cell lymphoma
     Dosage: UNK, CYCLICAL (6 CYCLES; DA-EPOCH REGIMEN AT DOSE LEVEL +1)
     Route: 065
  5. VINCRISTINE [Suspect]
     Active Substance: VINCRISTINE
     Indication: Hepatosplenic T-cell lymphoma
     Dosage: UNK, CYCLICAL (6 CYCLES; DA-EPOCH REGIMEN AT DOSE LEVEL +1)
     Route: 065
  6. PRALATREXATE [Suspect]
     Active Substance: PRALATREXATE
     Indication: Hepatosplenic T-cell lymphoma
     Dosage: UNK (10-20-30 MG/M2; 4 DOSES)
     Route: 065
  7. PRALATREXATE [Suspect]
     Active Substance: PRALATREXATE
     Dosage: 25 MILLIGRAM/SQ. METER (FOR 2 WEEKS (ON DAY 1 TO 15) OF A 28 DAYS TREATMENT CYCLE)
     Route: 065
  8. ROMIDEPSIN [Suspect]
     Active Substance: ROMIDEPSIN
     Indication: Hepatosplenic T-cell lymphoma
     Dosage: 12 MILLIGRAM/SQ. METER (FOR 2 WEEKS (ON DAY 1 TO 15) OF A 28 DAYS TREATMENT CYCLE)
     Route: 065

REACTIONS (3)
  - Febrile neutropenia [Unknown]
  - Drug ineffective [Unknown]
  - Off label use [Unknown]
